FAERS Safety Report 17182160 (Version 1)
Quarter: 2019Q4

REPORT INFORMATION
  Report Type: Spontaneous
  Country: NO (occurrence: NO)
  Receive Date: 20191220
  Receipt Date: 20191220
  Transmission Date: 20200122
  Serious: Yes (Disabling)
  Sender: FDA-Public Use
  Company Number: NO-ABBVIE-19P-122-3204564-00

PATIENT
  Age: 20 Year
  Sex: Female
  Weight: 120 kg

DRUGS (2)
  1. PROCRIN [Suspect]
     Active Substance: LEUPROLIDE ACETATE
     Route: 065
  2. PROCRIN [Suspect]
     Active Substance: LEUPROLIDE ACETATE
     Indication: ENDOMETRIOSIS
     Dosage: 3 MILLIGRAM, MONTHLY
     Route: 065
     Dates: start: 20110606, end: 20111206

REACTIONS (3)
  - Fatigue [Not Recovered/Not Resolved]
  - Weight increased [Not Recovered/Not Resolved]
  - Pain [Not Recovered/Not Resolved]

NARRATIVE: CASE EVENT DATE: 20110621
